FAERS Safety Report 20133960 (Version 2)
Quarter: 2022Q1

REPORT INFORMATION
  Report Type: Spontaneous
  Country: US (occurrence: US)
  Receive Date: 20211201
  Receipt Date: 20220309
  Transmission Date: 20220424
  Serious: No
  Sender: FDA-Public Use
  Company Number: US-GLAXOSMITHKLINE-US2021AMR242725

PATIENT
  Sex: Female

DRUGS (4)
  1. BENLYSTA [Suspect]
     Active Substance: BELIMUMAB
     Indication: Hidradenitis
     Dosage: 200 MG, WE (EVERY WEEK)
     Route: 058
  2. BENLYSTA [Suspect]
     Active Substance: BELIMUMAB
     Indication: Connective tissue disorder
  3. BENLYSTA [Suspect]
     Active Substance: BELIMUMAB
     Indication: Connective tissue disorder
     Dosage: 200 MG, WE (EVERY WEEK)
     Route: 058
  4. BENLYSTA [Suspect]
     Active Substance: BELIMUMAB

REACTIONS (3)
  - Central nervous system lesion [Unknown]
  - Product use in unapproved indication [Unknown]
  - Product dose omission issue [Unknown]
